FAERS Safety Report 8586327-0 (Version None)
Quarter: 2012Q3

REPORT INFORMATION
  Report Type: 
  Country: None (occurrence: None)
  Receive Date: 20120810
  Receipt Date: 20120801
  Transmission Date: 20120928
  Serious: Yes (Hospitalization)
  Sender: FDA-Public Use
  Company Number: US-ASTRAZENECA-2012SE54388

PATIENT
  Age: 43 Year
  Sex: Male
  Weight: 74.8 kg

DRUGS (2)
  1. SEROQUEL XR [Suspect]
     Dosage: 1 300 MG TABLET AND HALF 300 MG TABLET
     Route: 048
  2. SEROQUEL XR [Suspect]
     Indication: BIPOLAR DISORDER
     Route: 048

REACTIONS (5)
  - ADVERSE EVENT [None]
  - OFF LABEL USE [None]
  - ANXIETY [None]
  - PANIC ATTACK [None]
  - HYPERSOMNIA [None]
